FAERS Safety Report 8516269-8 (Version None)
Quarter: 2012Q3

REPORT INFORMATION
  Report Type: 
  Country: None (occurrence: None)
  Receive Date: 20120717
  Receipt Date: 20120702
  Transmission Date: 20120928
  Serious: Yes (Other)
  Sender: FDA-Public Use
  Company Number: CHPA2012US014904

PATIENT
  Age: 51 Year
  Sex: Female

DRUGS (1)
  1. EXCEDRIN EXTRA STRENGTH TABLETS [Suspect]
     Indication: HEADACHE
     Dosage: 2 DF, Q4H
     Route: 048

REACTIONS (11)
  - DRUG DEPENDENCE [None]
  - HEADACHE [None]
  - MALAISE [None]
  - INCORRECT DRUG ADMINISTRATION DURATION [None]
  - WITHDRAWAL SYNDROME [None]
  - MIGRAINE [None]
  - VOMITING [None]
  - NERVOUSNESS [None]
  - OVERDOSE [None]
  - ULCER [None]
  - CHILLS [None]
